FAERS Safety Report 12008000 (Version 1)
Quarter: 2016Q1

REPORT INFORMATION
  Report Type: Spontaneous
  Country: None (occurrence: US)
  Receive Date: 20160205
  Receipt Date: 20160205
  Transmission Date: 20160526
  Serious: No
  Sender: FDA-Public Use
  Company Number: US-SERB S.A.S.-1047354

PATIENT
  Age: 55 Year
  Sex: Male

DRUGS (1)
  1. CYANOKIT [Suspect]
     Active Substance: HYDROXOCOBALAMIN
     Indication: HYPOTENSION
     Route: 042

REACTIONS (1)
  - Chromaturia [Recovered/Resolved]
